FAERS Safety Report 5340655-0 (Version None)
Quarter: 2007Q2

REPORT INFORMATION
  Report Type: 
  Country: None (occurrence: None)
  Receive Date: 20070531
  Receipt Date: 20070522
  Transmission Date: 20071010
  Serious: Yes (Other)
  Sender: FDA-Public Use
  Company Number: US-PFIZER INC-2007041675

PATIENT
  Sex: Female
  Weight: 77.1 kg

DRUGS (9)
  1. LYRICA [Suspect]
     Indication: ARTHRALGIA
  2. CELEXA [Concomitant]
  3. SYNTHROID [Concomitant]
     Indication: THYROID DISORDER
  4. ESTRADIOL [Concomitant]
     Indication: HYSTERECTOMY
  5. PREVACID [Concomitant]
     Indication: EROSIVE OESOPHAGITIS
  6. HYDROXYCHLOROQUINE SULFATE [Concomitant]
     Indication: SYSTEMIC LUPUS ERYTHEMATOSUS
  7. HYDROXYZINE HYDROCHLORIDE [Concomitant]
     Indication: PRURITUS
  8. HYDROCODONE BITARTRATE [Concomitant]
     Indication: PAIN
  9. XANAX [Concomitant]
     Indication: PANIC ATTACK

REACTIONS (6)
  - BONE DENSITY DECREASED [None]
  - CONFUSIONAL STATE [None]
  - DISORIENTATION [None]
  - DRY MOUTH [None]
  - MIGRAINE [None]
  - OSTEOPENIA [None]
